FAERS Safety Report 21450551 (Version 1)
Quarter: 2022Q4

REPORT INFORMATION
  Report Type: Spontaneous
  Country: US (occurrence: US)
  Receive Date: 20221013
  Receipt Date: 20221013
  Transmission Date: 20230113
  Serious: No
  Sender: FDA-Public Use
  Company Number: US-GSK-US2022145898

PATIENT
  Age: 56 Year
  Sex: Female

DRUGS (1)
  1. BENLYSTA [Suspect]
     Active Substance: BELIMUMAB
     Indication: Systemic lupus erythematosus
     Dosage: 200 MG
     Dates: start: 202208

REACTIONS (6)
  - Fatigue [Recovered/Resolved]
  - Headache [Recovered/Resolved]
  - Rash [Not Recovered/Not Resolved]
  - Skin discolouration [Not Recovered/Not Resolved]
  - Wound [Not Recovered/Not Resolved]
  - Impaired healing [Unknown]

NARRATIVE: CASE EVENT DATE: 20220801
